FAERS Safety Report 24422937 (Version 1)
Quarter: 2024Q4

REPORT INFORMATION
  Report Type: Spontaneous
  Country: US (occurrence: US)
  Receive Date: 20241010
  Receipt Date: 20241010
  Transmission Date: 20250114
  Serious: Yes (Hospitalization, Other)
  Sender: AMGEN
  Company Number: US-AMGEN-USASP2024198758

PATIENT
  Age: 66 Year
  Sex: Male

DRUGS (8)
  1. PREDNISONE [Suspect]
     Active Substance: PREDNISONE
     Indication: Chorea
     Dosage: 10 MILLIGRAM, TAPER WITH DECREMENTS EVERY 7 DAYS, FOR A TOTAL 6 WEEKS
     Route: 065
  2. DEXMEDETOMIDINE [Concomitant]
     Active Substance: DEXMEDETOMIDINE
     Indication: Chorea
  3. CLONAZEPAM [Concomitant]
     Active Substance: CLONAZEPAM
     Indication: Chorea
     Dosage: 0.5 MILLIGRAM, BID
     Route: 065
  4. VALPROIC ACID [Concomitant]
     Active Substance: VALPROIC ACID
     Indication: Chorea
     Dosage: 500 MILLIGRAM, BID
  5. QUETIAPINE [Concomitant]
     Active Substance: QUETIAPINE
     Indication: Chorea
     Dosage: UNK, (25-100 MG FOR 13 DAYS)
  6. RISPERIDONE [Concomitant]
     Active Substance: RISPERIDONE
     Indication: Chorea
     Dosage: UNK, (0.25-2 MG FOR 12 DAYS).
  7. METHYLPREDNISOLONE [Concomitant]
     Active Substance: METHYLPREDNISOLONE
     Indication: Chorea
     Dosage: 1000 MILLIGRAM, FOR FIVE DAYS FROM POD 27-31 PULSE
     Route: 042
  8. METHYLPREDNISOLONE [Concomitant]
     Active Substance: METHYLPREDNISOLONE
     Dosage: UNK
     Route: 042

REACTIONS (5)
  - Ischaemic stroke [Unknown]
  - Chorea [Recovered/Resolved]
  - Inflammatory marker increased [Unknown]
  - Gastrointestinal haemorrhage [Unknown]
  - Off label use [Unknown]
